FAERS Safety Report 9217935 (Version 3)
Quarter: 2013Q4

REPORT INFORMATION
  Report Type: Spontaneous
  Country: US (occurrence: US)
  Receive Date: 20130408
  Receipt Date: 20131115
  Transmission Date: 20140711
  Serious: Yes (Hospitalization)
  Sender: FDA-Public Use
  Company Number: US-PFIZER INC-2013109827

PATIENT
  Age: 65 Year
  Sex: Male
  Weight: 117.91 kg

DRUGS (6)
  1. ACCUPRIL [Suspect]
     Indication: HYPERTENSION
     Dosage: 40 MG, 1X/DAY
     Route: 048
  2. CARDURA [Suspect]
     Indication: PROSTATOMEGALY
     Dosage: 1 MG, 2X/DAY
     Route: 048
  3. LIPITOR [Suspect]
     Indication: BLOOD CHOLESTEROL INCREASED
     Dosage: 20 MG, 1X/DAY
     Route: 048
  4. HYTRIN [Concomitant]
     Indication: PROSTATOMEGALY
     Dosage: UNK
  5. METFORMIN [Concomitant]
     Indication: DIABETES MELLITUS
     Dosage: UNK
  6. MOTRIN [Concomitant]
     Indication: ARTHRALGIA
     Dosage: UNK

REACTIONS (1)
  - Pneumonia [Recovered/Resolved]
